FAERS Safety Report 17728628 (Version 1)
Quarter: 2020Q2

REPORT INFORMATION
  Report Type: Spontaneous
  Country: DE (occurrence: DE)
  Receive Date: 20200430
  Receipt Date: 20200430
  Transmission Date: 20200714
  Serious: Yes (Death, Hospitalization, Other)
  Sender: FDA-Public Use
  Company Number: DE-ASTRAZENECA-2020SE54183

PATIENT
  Age: 80 Year
  Sex: Female
  Weight: 75 kg

DRUGS (9)
  1. BISOPROLOL [Suspect]
     Active Substance: BISOPROLOL
     Dosage: 7.5 MILLIGRAMS, DAILY, 2.5 MG; 2-0-1-0
     Route: 065
  2. ACETYLSALICYLIC ACID [Concomitant]
     Active Substance: ASPIRIN
     Dosage: 100 MG, DAILY; 100 MG, 1-0-0-0
     Route: 065
  3. TORASEMID [Concomitant]
     Active Substance: TORSEMIDE
     Dosage: 30 MG, DAILY; 10 MG, 2-1-0-0
     Route: 065
  4. SPIRONOLACTON [Concomitant]
     Active Substance: SPIRONOLACTONE
     Dosage: 25 MG, DAILY; 25 MG, 1-0-0-0
     Route: 065
  5. FULVESTRANT. [Suspect]
     Active Substance: FULVESTRANT
     Dosage: DOSE AND FREQUENCY UNKNOWN
     Route: 065
  6. METOCLOPRAMID [Concomitant]
     Active Substance: METOCLOPRAMIDE
     Dosage: DOSE AND FREQUENCY UNKNOWN
     Route: 065
  7. POTASSIUM VERLA [Concomitant]
     Dosage: 1 DOSAGE FORM, DAILY, 1-0-0-0
     Route: 065
  8. METAMIZOL [Concomitant]
     Active Substance: METAMIZOLE SODIUM
     Dosage: 500 MG, EVERY SIX HOURS; 500 MG, 1-1-1-1
     Route: 065
  9. APIXABAN [Concomitant]
     Active Substance: APIXABAN
     Dosage: 2.5 MG, EVERY 12 HOURS; 2.5 MG, 1-0-1-0
     Route: 065

REACTIONS (8)
  - Atrial fibrillation [Unknown]
  - Asthenia [Unknown]
  - Painful respiration [Unknown]
  - Oedema peripheral [Unknown]
  - Decreased appetite [Unknown]
  - Dyspnoea [Unknown]
  - General physical health deterioration [Unknown]
  - Arrhythmia [Unknown]
